FAERS Safety Report 4591896-1 (Version None)
Quarter: 2005Q1

REPORT INFORMATION
  Report Type: 
  Country: None (occurrence: None)
  Receive Date: 20050222
  Receipt Date: 20050204
  Transmission Date: 20050727
  Serious: Yes (Hospitalization)
  Sender: FDA-Public Use
  Company Number: 8006824

PATIENT
  Age: 7 Year
  Sex: Female
  Weight: 27 kg

DRUGS (23)
  1. KEPPRA [Suspect]
     Indication: MYOCLONUS
     Dosage: 250 MG 2/D  PO
     Route: 048
     Dates: start: 20040603, end: 20040610
  2. KEPPRA [Suspect]
     Indication: MYOCLONUS
     Dosage: 350 MG 2/D PO
     Route: 048
     Dates: start: 20040611, end: 20040711
  3. KEPPRA [Suspect]
     Indication: MYOCLONUS
     Dosage: 200 MG 2/D PO
     Route: 048
     Dates: start: 20040712, end: 20040716
  4. VANCOMYCIN [Concomitant]
  5. FORTAZ [Concomitant]
  6. FLUCONAZOLE [Concomitant]
  7. ACYCLOVIR [Concomitant]
  8. NEUPOGEN [Concomitant]
  9. MIRALAX [Concomitant]
  10. MEROPENEM [Concomitant]
  11. METHOTREXATE CHEMOTHERAPY [Concomitant]
  12. FLAGYL [Concomitant]
  13. PENTAMIDINE [Concomitant]
  14. ZOFRAN [Concomitant]
  15. BIOTIN [Concomitant]
  16. CYTOXAN [Concomitant]
  17. VINCRISTINE [Concomitant]
  18. ETOPOSIDE [Concomitant]
  19. CLINDAMYCIN [Concomitant]
  20. MORPHINE [Concomitant]
  21. TPN [Concomitant]
  22. GLUTAMINE [Concomitant]
  23. TEMOZOLAMIDE [Concomitant]

REACTIONS (2)
  - BONE MARROW DEPRESSION [None]
  - FEBRILE NEUTROPENIA [None]
